FAERS Safety Report 11501215 (Version 1)
Quarter: 2015Q3

REPORT INFORMATION
  Report Type: Spontaneous
  Country: US (occurrence: US)
  Receive Date: 20150903
  Receipt Date: 20150903
  Transmission Date: 20151125
  Serious: No
  Sender: FDA-Public Use
  Company Number: US-ELI_LILLY_AND_COMPANY-US200907007278

PATIENT
  Sex: Female

DRUGS (4)
  1. HUMALOG [Suspect]
     Active Substance: INSULIN LISPRO
     Dosage: UNK, UNK
     Dates: end: 200907
  2. PRANDIN [Concomitant]
     Active Substance: REPAGLINIDE
     Dosage: UNK, UNK
  3. PRANDIN [Concomitant]
     Active Substance: REPAGLINIDE
     Dates: start: 200907
  4. LANTUS [Concomitant]
     Active Substance: INSULIN GLARGINE
     Dosage: 40 U, EACH EVENING

REACTIONS (2)
  - Blood glucose increased [Unknown]
  - Insulin resistance [Unknown]

NARRATIVE: CASE EVENT DATE: 20090717
